FAERS Safety Report 7462944-6 (Version None)
Quarter: 2011Q2

REPORT INFORMATION
  Report Type: 
  Country: None (occurrence: None)
  Receive Date: 20110506
  Receipt Date: 20110222
  Transmission Date: 20111010
  Serious: No
  Sender: FDA-Public Use
  Company Number: US-BAYER-2011-017307

PATIENT
  Age: 53 Year
  Sex: Female

DRUGS (4)
  1. ACCUPRIL [Concomitant]
  2. TAMIFLU [Concomitant]
  3. AVELOX [Suspect]
     Indication: PRODUCT USED FOR UNKNOWN INDICATION
     Dosage: 400 MG, QD
     Route: 048
     Dates: start: 20110222
  4. LORAZEPAM [Concomitant]

REACTIONS (1)
  - NAUSEA [None]
